FAERS Safety Report 8055179-X (Version None)
Quarter: 2012Q1

REPORT INFORMATION
  Report Type: 
  Country: None (occurrence: None)
  Receive Date: 20120119
  Receipt Date: 20111010
  Transmission Date: 20120608
  Serious: Yes (Life-Threatening, Hospitalization)
  Sender: FDA-Public Use
  Company Number: PHHO2011KR12888

PATIENT
  Sex: Male
  Weight: 59 kg

DRUGS (17)
  1. BLINDED LBH589 [Suspect]
     Indication: MULTIPLE MYELOMA
     Dosage: CODE NOT BROKEN
     Route: 048
     Dates: start: 20110704
  2. BLINDED PLACEBO [Suspect]
     Indication: MULTIPLE MYELOMA
     Dosage: CODE NOT BROKEN
     Route: 048
     Dates: start: 20110704
  3. ALLOPURINOL [Concomitant]
     Indication: PROPHYLAXIS
     Dosage: 100 MG, TID
     Route: 048
     Dates: start: 20110704
  4. DEXAMETHASONE [Suspect]
     Indication: MULTIPLE MYELOMA
     Dosage: CODE NOT BROKEN
     Route: 048
     Dates: start: 20110704
  5. COMPARATOR FORTECORTIN [Suspect]
     Indication: MULTIPLE MYELOMA
     Dosage: 20 MG, QD
     Route: 048
     Dates: start: 20110704
  6. SULFAMETHOXAZOLE [Concomitant]
     Indication: PROPHYLAXIS
     Dosage: 480 MG, QD
     Route: 048
     Dates: start: 20110725
  7. BLINDED NO TREATMENT RECEIVED [Suspect]
     Indication: MULTIPLE MYELOMA
     Dosage: CODE NOT BROKEN
     Route: 048
     Dates: start: 20110704
  8. PANTOPRAZOLE SODIUM [Concomitant]
     Indication: PROPHYLAXIS
     Dosage: 20 MG, QD
     Route: 048
     Dates: start: 20090323
  9. ZOVIRAX [Concomitant]
     Indication: PROPHYLAXIS
     Dosage: 400 MG, QD
     Route: 048
     Dates: start: 20110704
  10. CHLORPHENIRAMINE MALEATE [Concomitant]
     Indication: PROPHYLAXIS
     Dosage: 4 MG, QD
     Route: 042
     Dates: start: 20110729, end: 20110730
  11. LASIX [Concomitant]
     Indication: PROPHYLAXIS
     Dosage: 20 MG, QD
     Route: 042
     Dates: start: 20110731, end: 20110801
  12. MORPHINE SULFATE [Concomitant]
     Indication: HEADACHE
     Dosage: 1 MG, TID
     Route: 042
     Dates: start: 20110730, end: 20110731
  13. NEUPOGEN [Concomitant]
     Indication: NEUTROPENIA
     Dosage: 250 UG, QD
     Route: 042
     Dates: start: 20110731, end: 20110731
  14. VELCADE [Suspect]
     Indication: MULTIPLE MYELOMA
     Dosage: CODE NOT BROKEN
     Route: 048
     Dates: start: 20110704
  15. BORTEZOMIB [Suspect]
     Indication: MULTIPLE MYELOMA
     Dosage: 2 MG, QD
     Route: 042
     Dates: start: 20110704
  16. MUCOSTA [Concomitant]
     Indication: PROPHYLAXIS
     Dosage: 100 MG, TID
     Route: 048
     Dates: start: 20100308
  17. NUTRIFLEX LIPID [Concomitant]
     Indication: MEDICAL DIET
     Dosage: 1250 MG, QD
     Route: 042
     Dates: start: 20110729, end: 20110731

REACTIONS (2)
  - ASTHENIA [None]
  - NASOPHARYNGITIS [None]
